FAERS Safety Report 9412227 (Version 1)
Quarter: 2013Q3

REPORT INFORMATION
  Report Type: Spontaneous
  Country: US (occurrence: US)
  Receive Date: 20130722
  Receipt Date: 20130722
  Transmission Date: 20140515
  Serious: Yes (Other)
  Sender: FDA-Public Use
  Company Number: US-PFIZER INC-2013207480

PATIENT
  Age: 11 Year
  Sex: Male
  Weight: 48.1 kg

DRUGS (5)
  1. GENOTROPIN [Suspect]
     Dosage: 1.5 MG, (7 DAYS A WEEK)
     Route: 058
  2. DEPAKOTE [Concomitant]
     Dosage: 250 MG, UNK
  3. CITALOPRAM [Concomitant]
     Dosage: 10 MG, UNK
  4. FISH OIL [Concomitant]
     Dosage: UNK
  5. LACTAID [Concomitant]
     Dosage: UNK, 4500 ES

REACTIONS (3)
  - Epilepsy [Unknown]
  - Convulsion [Unknown]
  - Sleep apnoea syndrome [Unknown]
